FAERS Safety Report 23311832 (Version 1)
Quarter: 2023Q4

REPORT INFORMATION
  Report Type: Spontaneous
  Country: US (occurrence: None)
  Receive Date: 20231218
  Receipt Date: 20231218
  Transmission Date: 20240109
  Serious: Yes (Death)
  Sender: FDA-Public Use
  Company Number: None

PATIENT
  Age: 76 Year
  Sex: Male

DRUGS (1)
  1. ZYNYZ [Suspect]
     Active Substance: RETIFANLIMAB-DLWR
     Dosage: FREQUENCY : MONTHLY;?
     Route: 042
     Dates: start: 20231020

REACTIONS (1)
  - Death [None]

NARRATIVE: CASE EVENT DATE: 20231203
